FAERS Safety Report 4768749-9 (Version None)
Quarter: 2005Q3

REPORT INFORMATION
  Report Type: 
  Country: None (occurrence: None)
  Receive Date: 20050914
  Receipt Date: 20050907
  Transmission Date: 20060218
  Serious: Yes (Other)
  Sender: FDA-Public Use
  Company Number: GR-GLAXOSMITHKLINE-B0393666A

PATIENT
  Age: 70 Year
  Sex: Female

DRUGS (1)
  1. ROPINIROLE [Suspect]
     Indication: TREMOR
     Dosage: 1MG THREE TIMES PER DAY
     Route: 048
     Dates: start: 20050101, end: 20050801

REACTIONS (2)
  - HEPATIC ENZYME INCREASED [None]
  - HEPATOMEGALY [None]
